FAERS Safety Report 8215009-X (Version None)
Quarter: 2012Q1

REPORT INFORMATION
  Report Type: 
  Country: None (occurrence: None)
  Receive Date: 20120229
  Receipt Date: 20110615
  Transmission Date: 20120608
  Serious: Yes (Hospitalization)
  Sender: FDA-Public Use
  Company Number: PHHY2011US52843

PATIENT
  Age: 39 Year
  Sex: Male
  Weight: 100 kg

DRUGS (12)
  1. MYCOPHENOLATE MOFETIL [Concomitant]
  2. PREVACID [Concomitant]
  3. AMLODIPINE [Concomitant]
  4. HYTRIN [Concomitant]
  5. CARVEDILOL [Concomitant]
  6. COZAAR [Concomitant]
  7. METOPROLOL SUCCINATE [Concomitant]
  8. PREDNISONE [Concomitant]
  9. ATORVASTATIN [Concomitant]
  10. NEORAL [Suspect]
     Indication: RENAL TRANSPLANT
     Dosage: 500 MG, DAILY,200 MG, DAILY
     Dates: start: 20100322
  11. NEORAL [Suspect]
     Indication: RENAL TRANSPLANT
     Dosage: 500 MG, DAILY,200 MG, DAILY
     Dates: start: 20051015
  12. NIFEDIPINE [Concomitant]

REACTIONS (1)
  - PANCREATITIS [None]
